FAERS Safety Report 12921927 (Version 1)
Quarter: 2016Q4

REPORT INFORMATION
  Report Type: Spontaneous
  Country: US (occurrence: US)
  Receive Date: 20161108
  Receipt Date: 20161108
  Transmission Date: 20170207
  Serious: No
  Sender: FDA-Public Use
  Company Number: US-BRISTOL-MYERS SQUIBB COMPANY-BMS-2016-088058

PATIENT
  Sex: Male

DRUGS (1)
  1. YERVOY [Suspect]
     Active Substance: IPILIMUMAB
     Indication: MALIGNANT MELANOMA
     Route: 042

REACTIONS (9)
  - Nasopharyngitis [Recovered/Resolved]
  - Vision blurred [Unknown]
  - Rash [Unknown]
  - Chromaturia [Unknown]
  - Headache [Recovered/Resolved]
  - Diarrhoea [Unknown]
  - Visual impairment [Unknown]
  - Hypoaesthesia [Unknown]
  - Pruritus [Unknown]
